FAERS Safety Report 15321606 (Version 1)
Quarter: 2018Q3

REPORT INFORMATION
  Report Type: Spontaneous
  Country: US (occurrence: US)
  Receive Date: 20180827
  Receipt Date: 20180827
  Transmission Date: 20181010
  Serious: No
  Sender: FDA-Public Use
  Company Number: US-MYLANLABS-2018M1061991

PATIENT
  Sex: Female

DRUGS (1)
  1. PAROXETINE EXTENDED?RELEASE TABLETS USP [Suspect]
     Active Substance: PAROXETINE
     Indication: PRODUCT USED FOR UNKNOWN INDICATION
     Dosage: UNK
     Route: 048

REACTIONS (2)
  - Unevaluable event [Not Recovered/Not Resolved]
  - Product storage error [Unknown]
